FAERS Safety Report 14759854 (Version 1)
Quarter: 2018Q2

REPORT INFORMATION
  Report Type: Spontaneous
  Country: US (occurrence: US)
  Receive Date: 20180413
  Receipt Date: 20180413
  Transmission Date: 20180711
  Serious: No
  Sender: FDA-Public Use
  Company Number: US-MYLANLABS-2018M1019536

PATIENT
  Age: 36 Year
  Sex: Female
  Weight: 82 kg

DRUGS (1)
  1. EPIPEN [Suspect]
     Active Substance: EPINEPHRINE
     Indication: ANAPHYLACTIC REACTION
     Dosage: UNK
     Route: 065
     Dates: start: 20180319, end: 20180319

REACTIONS (3)
  - Injection site hypoaesthesia [Recovering/Resolving]
  - Prescription drug used without a prescription [Unknown]
  - Injection site pain [Recovered/Resolved]

NARRATIVE: CASE EVENT DATE: 20180319
